FAERS Safety Report 14982593 (Version 1)
Quarter: 2018Q2

REPORT INFORMATION
  Report Type: Spontaneous
  Country: US (occurrence: US)
  Receive Date: 20180607
  Receipt Date: 20180607
  Transmission Date: 20180711
  Serious: No
  Sender: FDA-Public Use
  Company Number: US-PFIZER INC-2018024063

PATIENT
  Age: 63 Year
  Sex: Female
  Weight: 197 kg

DRUGS (2)
  1. DOCETAXEL. [Suspect]
     Active Substance: DOCETAXEL
     Indication: BREAST CANCER
     Dosage: CYCLIC (EVERY 3 WEEKS, NUMBER OF CYCLES 16)
     Dates: start: 201202, end: 201208
  2. DEPOCYT [Concomitant]
     Active Substance: CYTARABINE
     Dosage: UNK

REACTIONS (4)
  - Hair texture abnormal [Not Recovered/Not Resolved]
  - Hair colour changes [Not Recovered/Not Resolved]
  - Alopecia [Not Recovered/Not Resolved]
  - Hair disorder [Not Recovered/Not Resolved]

NARRATIVE: CASE EVENT DATE: 201206
